FAERS Safety Report 5577600-9 (Version None)
Quarter: 2007Q4

REPORT INFORMATION
  Report Type: 
  Country: None (occurrence: None)
  Receive Date: 20071230
  Receipt Date: 20071226
  Transmission Date: 20080405
  Serious: Yes (Other)
  Sender: FDA-Public Use
  Company Number: US-ALLERGAN-0714238US

PATIENT
  Sex: Female
  Weight: 47.166 kg

DRUGS (2)
  1. BOTOX COSMETIC [Suspect]
     Indication: SKIN WRINKLING
     Dosage: UNK, SINGLE
     Route: 030
     Dates: start: 20071214, end: 20071214
  2. INFLUENZA VACCINE [Concomitant]
     Dates: start: 20071101, end: 20071101

REACTIONS (6)
  - DYSPNOEA [None]
  - INFLUENZA [None]
  - ODYNOPHAGIA [None]
  - PYREXIA [None]
  - RESPIRATORY TRACT INFECTION [None]
  - WEIGHT DECREASED [None]
